FAERS Safety Report 9113107 (Version 1)
Quarter: 2013Q1

REPORT INFORMATION
  Report Type: Spontaneous
  Country: IT (occurrence: IT)
  Receive Date: 20130211
  Receipt Date: 20130211
  Transmission Date: 20140127
  Serious: Yes (Hospitalization)
  Sender: FDA-Public Use
  Company Number: IT-TEVA-384580ISR

PATIENT
  Age: 13 Year
  Sex: Female

DRUGS (6)
  1. ALPRAZOLAM [Suspect]
     Dosage: 5 MILLIGRAM DAILY;
     Route: 048
     Dates: start: 20130102, end: 20130102
  2. ESOMEPRAZOLE [Suspect]
     Route: 048
     Dates: start: 20130102, end: 20130102
  3. PANTOPRAZOLE [Suspect]
     Route: 048
     Dates: start: 20130102, end: 20130102
  4. SPORANOX [Suspect]
     Route: 048
     Dates: start: 20130102, end: 20130102
  5. LAROXYL [Suspect]
     Route: 048
     Dates: start: 20130102, end: 20130102
  6. MORNIFLUMATO [Suspect]
     Route: 048
     Dates: start: 20130102, end: 20130102

REACTIONS (4)
  - Intentional self-injury [Recovered/Resolved]
  - Drug abuse [Recovered/Resolved]
  - Sopor [Recovered/Resolved]
  - Aphasia [Recovered/Resolved]
